FAERS Safety Report 7901374-7 (Version None)
Quarter: 2011Q4

REPORT INFORMATION
  Report Type: 
  Country: None (occurrence: None)
  Receive Date: 20111108
  Receipt Date: 20111027
  Transmission Date: 20120403
  Serious: Yes (Hospitalization)
  Sender: FDA-Public Use
  Company Number: PHEH2011US07957

PATIENT
  Sex: Female

DRUGS (2)
  1. ALENDRONATE SODIUM [Suspect]
     Dosage: 70 MG, UNK
     Dates: start: 20100101
  2. INFLUENZA VIRUS VACC SEASONAL INN [Suspect]
     Indication: IMMUNISATION
     Dosage: 1 DF

REACTIONS (9)
  - PYREXIA [None]
  - DYSPHAGIA [None]
  - GAIT DISTURBANCE [None]
  - GASTROOESOPHAGEAL REFLUX DISEASE [None]
  - MALAISE [None]
  - DIARRHOEA [None]
  - DYSPNOEA [None]
  - ERUCTATION [None]
  - INFLUENZA LIKE ILLNESS [None]
